FAERS Safety Report 22061625 (Version 5)
Quarter: 2025Q1

REPORT INFORMATION
  Report Type: Report from Study
  Country: AR (occurrence: AR)
  Receive Date: 20230304
  Receipt Date: 20250327
  Transmission Date: 20250409
  Serious: Yes (Other)
  Sender: ABBVIE
  Company Number: AR-ABBVIE-4196322

PATIENT
  Age: 69 Year
  Sex: Male

DRUGS (2)
  1. RISANKIZUMAB [Suspect]
     Active Substance: RISANKIZUMAB
     Indication: Psoriasis
     Route: 058
     Dates: start: 20210721, end: 20210821
  2. RISANKIZUMAB [Suspect]
     Active Substance: RISANKIZUMAB
     Route: 058
     Dates: start: 20210821, end: 20230908

REACTIONS (4)
  - Basal cell carcinoma [Recovered/Resolved]
  - Erythema [Recovered/Resolved]
  - Skin plaque [Recovered/Resolved]
  - Photodermatosis [Unknown]

NARRATIVE: CASE EVENT DATE: 20220513
